FAERS Safety Report 24418162 (Version 4)
Quarter: 2025Q2

REPORT INFORMATION
  Report Type: Spontaneous
  Country: FR (occurrence: FR)
  Receive Date: 20241009
  Receipt Date: 20250529
  Transmission Date: 20250716
  Serious: Yes (Hospitalization, Other)
  Sender: PFIZER
  Company Number: FR-002147023-NVSC2024FR193863

PATIENT
  Age: 27 Year
  Sex: Male
  Weight: 65 kg

DRUGS (10)
  1. METHOTREXATE SODIUM [Suspect]
     Active Substance: METHOTREXATE SODIUM
  2. CYCLOSPORINE [Suspect]
     Active Substance: CYCLOSPORINE
     Route: 048
     Dates: start: 20240321
  3. THIOTEPA [Suspect]
     Active Substance: THIOTEPA
     Route: 042
     Dates: start: 20240220, end: 20240224
  4. THYMOGLOBULIN [Suspect]
     Active Substance: LAPINE T-LYMPHOCYTE IMMUNE GLOBULIN
  5. FLUDARABINE PHOSPHATE [Suspect]
     Active Substance: FLUDARABINE PHOSPHATE
     Route: 042
     Dates: start: 20240222, end: 20240225
  6. CYCLOPHOSPHAMIDE [Suspect]
     Active Substance: CYCLOPHOSPHAMIDE
     Route: 042
     Dates: start: 20240308, end: 20240309
  7. BACLOFEN [Suspect]
     Active Substance: BACLOFEN
     Route: 042
     Dates: start: 20240222, end: 20240224
  8. MYCOPHENOLATE MOFETIL [Suspect]
     Active Substance: MYCOPHENOLATE MOFETIL
     Route: 042
     Dates: start: 20240219, end: 20240227
  9. VALACYCLOVIR [Concomitant]
     Active Substance: VALACYCLOVIR HYDROCHLORIDE
     Indication: Prophylaxis
     Route: 048
  10. AMOXICILLIN [Concomitant]
     Active Substance: AMOXICILLIN
     Indication: Prophylaxis
     Route: 048

REACTIONS (2)
  - Plasma cell myeloma refractory [Recovered/Resolved]
  - Transplant failure [Unknown]

NARRATIVE: CASE EVENT DATE: 20240710
